FAERS Safety Report 7672537-3 (Version None)
Quarter: 2011Q3

REPORT INFORMATION
  Report Type: 
  Country: None (occurrence: None)
  Receive Date: 20110809
  Receipt Date: 20110727
  Transmission Date: 20111222
  Serious: Yes (Hospitalization)
  Sender: FDA-Public Use
  Company Number: GR-MYLANLABS-2011S1015751

PATIENT
  Age: 72 Year
  Sex: Male

DRUGS (2)
  1. VANCOMYCIN [Suspect]
     Route: 065
  2. MEROPENEM [Suspect]
     Route: 065

REACTIONS (1)
  - ENDOCARDITIS CANDIDA [None]
